FAERS Safety Report 16203276 (Version 1)
Quarter: 2019Q2

REPORT INFORMATION
  Report Type: Report from Study
  Country: CA (occurrence: CA)
  Receive Date: 20190416
  Receipt Date: 20190416
  Transmission Date: 20190711
  Serious: Yes (Other)
  Sender: FDA-Public Use
  Company Number: CA-JNJFOC-20190415313

PATIENT
  Age: 44 Year
  Sex: Female
  Weight: 75.3 kg

DRUGS (4)
  1. CORTISONE [Suspect]
     Active Substance: CORTISONE\HYDROCORTISONE
     Indication: PRODUCT USED FOR UNKNOWN INDICATION
     Route: 065
  2. STELARA [Suspect]
     Active Substance: USTEKINUMAB
     Indication: CROHN^S DISEASE
     Dosage: STRENGTH = 390 MG
     Route: 042
     Dates: start: 20181228
  3. SANDOZ AZITHROMYCIN [Suspect]
     Active Substance: AZITHROMYCIN
     Indication: PNEUMONIA
     Route: 065
  4. CLOTRIMAZOLE. [Suspect]
     Active Substance: CLOTRIMAZOLE
     Indication: VAGINAL INFECTION
     Route: 065

REACTIONS (3)
  - Pneumonia [Recovered/Resolved]
  - Vaginal infection [Recovered/Resolved]
  - Vulvovaginal pruritus [Recovered/Resolved]

NARRATIVE: CASE EVENT DATE: 20190118
